FAERS Safety Report 7119597-6 (Version None)
Quarter: 2010Q4

REPORT INFORMATION
  Report Type: 
  Country: None (occurrence: None)
  Receive Date: 20101123
  Receipt Date: 20101115
  Transmission Date: 20110411
  Serious: Yes (Other)
  Sender: FDA-Public Use
  Company Number: US-CELGENEUS-163-21880-10041077

PATIENT
  Sex: Male
  Weight: 97.156 kg

DRUGS (12)
  1. REVLIMID [Suspect]
     Indication: MULTIPLE MYELOMA
     Route: 048
     Dates: start: 20100201, end: 20100611
  2. REVLIMID [Suspect]
     Route: 048
     Dates: start: 20091201, end: 20100101
  3. REVLIMID [Suspect]
     Route: 048
     Dates: end: 20100301
  4. OXYCODONE HCL [Suspect]
     Indication: PAIN
     Route: 065
     Dates: start: 20100201
  5. ASA [Concomitant]
     Route: 065
  6. BENADRYL [Concomitant]
     Route: 065
  7. CEFUROX [Concomitant]
     Route: 065
  8. COUGH MEDICINE [Concomitant]
     Indication: COUGH
     Route: 065
  9. COUMADIN [Concomitant]
     Route: 065
  10. DEXAMETHASONE [Concomitant]
     Indication: MASS
     Dates: start: 20100601
  11. DULCOLAX [Concomitant]
     Route: 065
  12. ZOMETA [Concomitant]
     Route: 065

REACTIONS (2)
  - CONSTIPATION [None]
  - MASS [None]
